FAERS Safety Report 12432585 (Version 1)
Quarter: 2016Q2

REPORT INFORMATION
  Report Type: Spontaneous
  Country: US (occurrence: US)
  Receive Date: 20160603
  Receipt Date: 20160603
  Transmission Date: 20160815
  Serious: No
  Sender: FDA-Public Use
  Company Number: US-TEVA-661253ACC

PATIENT
  Sex: Female
  Weight: 63.11 kg

DRUGS (1)
  1. TAKE ACTION [Suspect]
     Active Substance: LEVONORGESTREL
     Indication: POST COITAL CONTRACEPTION

REACTIONS (5)
  - Chills [Unknown]
  - Diarrhoea [Recovered/Resolved]
  - Piloerection [Unknown]
  - Abdominal distension [Unknown]
  - Dysmenorrhoea [Unknown]
